FAERS Safety Report 8826523 (Version 1)
Quarter: 2012Q4

REPORT INFORMATION
  Report Type: 
  Country: US (occurrence: US)
  Receive Date: 20121005
  Receipt Date: 20121005
  Transmission Date: 20130627
  Serious: Yes (Other)
  Sender: FDA-Public Use
  Company Number: US-COVIDIEN/TYCO HEALTHCARE/MALLINCKRODT-T201203535

PATIENT
  Age: 33 Year
  Sex: Male

DRUGS (4)
  1. EXALGO EXTENDED RELEASE [Suspect]
     Indication: PAIN
     Dosage: 12 mg, unk
     Route: 048
     Dates: start: 201205
  2. ANTIHISTAMINES [Concomitant]
     Dosage: UNK
  3. ONDANSETRON [Concomitant]
     Dosage: UNK
  4. HYDROCODONE W/APAP                 /01554201/ [Concomitant]
     Dosage: 10/325, unk

REACTIONS (1)
  - Incorrect dose administered [Unknown]
